FAERS Safety Report 19117121 (Version 1)
Quarter: 2021Q2

REPORT INFORMATION
  Report Type: Spontaneous
  Country: CA (occurrence: CA)
  Receive Date: 20210409
  Receipt Date: 20210409
  Transmission Date: 20210717
  Serious: Yes (Other)
  Sender: FDA-Public Use
  Company Number: CA-BAYER-2019-163511

PATIENT
  Age: 17 Year
  Sex: Male
  Weight: 64.85 kg

DRUGS (4)
  1. GADOVIST [Suspect]
     Active Substance: GADOBUTROL
     Indication: MAGNETIC RESONANCE IMAGING ABDOMINAL
     Dosage: 5 ML, ONCE
     Dates: start: 20190904, end: 20190904
  2. PREDNISONE. [Concomitant]
     Active Substance: PREDNISONE
     Indication: ACNE
     Dosage: UNK
  3. INFLIXIMAB [Concomitant]
     Active Substance: INFLIXIMAB
     Indication: CROHN^S DISEASE
     Dosage: UNK
  4. GLUCAGON. [Suspect]
     Active Substance: GLUCAGON

REACTIONS (9)
  - Erythema [Recovered/Resolved]
  - Sneezing [Recovered/Resolved]
  - Nasal congestion [None]
  - Throat irritation [Recovered/Resolved]
  - Pharyngeal swelling [Recovered/Resolved]
  - Dyspnoea [Recovered/Resolved]
  - Malaise [Recovered/Resolved]
  - Off label use [None]
  - Swelling face [Recovered/Resolved]
